FAERS Safety Report 12965727 (Version 2)
Quarter: 2018Q4

REPORT INFORMATION
  Report Type: Spontaneous
  Country: US (occurrence: US)
  Receive Date: 20161122
  Receipt Date: 20181219
  Transmission Date: 20190204
  Serious: No
  Sender: FDA-Public Use
  Company Number: US-MERZ NORTH AMERICA, INC.-16MRZ-00670

PATIENT
  Age: 65 Year
  Sex: Female

DRUGS (10)
  1. XEOMIN [Suspect]
     Active Substance: INCOBOTULINUMTOXINA
     Dosage: 4 UNITS
     Dates: start: 20160623, end: 20180623
  2. LUNESTA [Concomitant]
     Active Substance: ESZOPICLONE
  3. CYMBALTA [Concomitant]
     Active Substance: DULOXETINE HYDROCHLORIDE
  4. CHLOROTHYADONE [Concomitant]
  5. XEOMIN [Suspect]
     Active Substance: INCOBOTULINUMTOXINA
     Indication: SKIN COSMETIC PROCEDURE
     Dosage: 40 UNITS
     Dates: start: 20160607, end: 20180607
  6. VITAMIN C [Concomitant]
     Active Substance: ASCORBIC ACID
  7. SCULPTRA AESTHETIC [Concomitant]
     Active Substance: POLYLACTIDE, L-
     Indication: SKIN COSMETIC PROCEDURE
  8. RESTYLANE FINE LINES [Concomitant]
     Indication: SKIN COSMETIC PROCEDURE
  9. CLONOPIN [Concomitant]
     Active Substance: CLONAZEPAM
  10. VITAMIN D [Concomitant]
     Active Substance: CHOLECALCIFEROL

REACTIONS (2)
  - Swelling [Unknown]
  - Injection site mass [Unknown]
